FAERS Safety Report 11822324 (Version 1)
Quarter: 2015Q4

REPORT INFORMATION
  Report Type: Spontaneous
  Country: US (occurrence: US)
  Receive Date: 20151210
  Receipt Date: 20151210
  Transmission Date: 20160305
  Serious: No
  Sender: FDA-Public Use
  Company Number: US-JNJFOC-20150703964

PATIENT
  Age: 74 Year
  Sex: Male
  Weight: 62 kg

DRUGS (8)
  1. IMBRUVICA [Suspect]
     Active Substance: IBRUTINIB
     Indication: LYMPHADENOPATHY
     Route: 048
     Dates: start: 20141009, end: 20150501
  2. COQ 10 [Concomitant]
     Active Substance: UBIDECARENONE
     Route: 048
  3. IMBRUVICA [Suspect]
     Active Substance: IBRUTINIB
     Indication: CHRONIC LYMPHOCYTIC LEUKAEMIA
     Route: 048
     Dates: start: 20141009, end: 20150501
  4. TIMOLOL. [Concomitant]
     Active Substance: TIMOLOL
     Route: 047
  5. ALLOPURINOL. [Concomitant]
     Active Substance: ALLOPURINOL
     Route: 048
  6. LATANOPROST. [Concomitant]
     Active Substance: LATANOPROST
     Route: 047
  7. VITAMIN D3 [Concomitant]
     Active Substance: CHOLECALCIFEROL
     Dosage: 5000QD
     Route: 048
  8. ASA [Concomitant]
     Active Substance: ASPIRIN
     Route: 048

REACTIONS (2)
  - Off label use [Recovered/Resolved]
  - Inappropriate schedule of drug administration [Recovered/Resolved]

NARRATIVE: CASE EVENT DATE: 20141009
